FAERS Safety Report 23866955 (Version 1)
Quarter: 2024Q2

REPORT INFORMATION
  Report Type: Spontaneous
  Country: CN (occurrence: CN)
  Receive Date: 20240517
  Receipt Date: 20240517
  Transmission Date: 20240715
  Serious: Yes (Hospitalization, Other)
  Sender: FDA-Public Use
  Company Number: CN-STRIDES ARCOLAB LIMITED-2024SP005733

PATIENT
  Age: 63 Year
  Sex: Male

DRUGS (3)
  1. PREDNISOLONE [Suspect]
     Active Substance: PREDNISOLONE
     Indication: Cronkhite-Canada syndrome
     Dosage: 40 MILLIGRAM, QD
     Route: 048
  2. PREDNISOLONE [Suspect]
     Active Substance: PREDNISOLONE
     Dosage: 10 MILLIGRAM, QD
     Route: 065
  3. PROBIOTICS NOS [Suspect]
     Active Substance: PROBIOTICS NOS
     Indication: Dysbiosis
     Dosage: UNK
     Route: 065

REACTIONS (5)
  - Osteonecrosis [Unknown]
  - Oral infection [Recovered/Resolved]
  - Cervicitis [Recovered/Resolved]
  - Fascial infection [Recovered/Resolved]
  - COVID-19 [Recovered/Resolved]
